FAERS Safety Report 22280168 (Version 2)
Quarter: 2023Q2

REPORT INFORMATION
  Report Type: Spontaneous
  Country: US (occurrence: US)
  Receive Date: 20230503
  Receipt Date: 20230508
  Transmission Date: 20230722
  Serious: No
  Sender: FDA-Public Use
  Company Number: US-002147023-NVSC2023US093777

PATIENT
  Sex: Male

DRUGS (1)
  1. TRILEPTAL [Suspect]
     Active Substance: OXCARBAZEPINE
     Indication: Relapsing-remitting multiple sclerosis
     Dosage: 1200 MG, TID
     Route: 048
     Dates: start: 2022

REACTIONS (2)
  - Neuralgia [Unknown]
  - Drug ineffective for unapproved indication [Unknown]
